FAERS Safety Report 17060383 (Version 2)
Quarter: 2019Q4

REPORT INFORMATION
  Report Type: Report from Study
  Country: IN (occurrence: IN)
  Receive Date: 20191121
  Receipt Date: 20191206
  Transmission Date: 20200122
  Serious: Yes (Death, Other)
  Sender: FDA-Public Use
  Company Number: NVSC2019IN041346

PATIENT
  Age: 71 Year
  Sex: Male

DRUGS (2)
  1. SPEXIB [Suspect]
     Active Substance: CERITINIB
     Indication: SMALL CELL LUNG CANCER
     Dosage: 450 MG, QD (ONCE DAILY)
     Route: 048
     Dates: start: 20191104, end: 20191115
  2. SPEXIB [Suspect]
     Active Substance: CERITINIB
     Indication: NON-SMALL CELL LUNG CANCER
     Dosage: 450 MG, QD
     Route: 048

REACTIONS (2)
  - Paralysis [Unknown]
  - Death [Fatal]

NARRATIVE: CASE EVENT DATE: 20191202
